FAERS Safety Report 25964873 (Version 1)
Quarter: 2025Q4

REPORT INFORMATION
  Report Type: Spontaneous
  Country: CN (occurrence: CN)
  Receive Date: 20251027
  Receipt Date: 20251027
  Transmission Date: 20260117
  Serious: Yes (Other)
  Sender: NOVARTIS
  Company Number: CN-002147023-NVSC2025CN164692

PATIENT
  Age: 59 Year
  Sex: Female

DRUGS (3)
  1. LETROZOLE [Suspect]
     Active Substance: LETROZOLE
     Indication: Metastases to uterus
     Dosage: UNK
     Route: 048
     Dates: start: 20220113
  2. CATEQUENTINIB [Suspect]
     Active Substance: CATEQUENTINIB
     Indication: Metastases to uterus
     Dosage: 12 MG (ON DAYS 1-14, EVERY 3 WEEKS)
     Route: 048
     Dates: start: 20210612
  3. CATEQUENTINIB [Suspect]
     Active Substance: CATEQUENTINIB
     Dosage: UNK
     Route: 048
     Dates: start: 20220113

REACTIONS (2)
  - Metastases to lung [Unknown]
  - Malignant neoplasm progression [Unknown]

NARRATIVE: CASE EVENT DATE: 20220501
